FAERS Safety Report 6644281-2 (Version None)
Quarter: 2010Q1

REPORT INFORMATION
  Report Type: 
  Country: None (occurrence: None)
  Receive Date: 20100319
  Receipt Date: 20100319
  Transmission Date: 20100710
  Serious: Yes (Hospitalization)
  Sender: FDA-Public Use
  Company Number: None

PATIENT
  Age: 65 Year
  Weight: 113.6 kg

DRUGS (14)
  1. COUMADIN [Suspect]
     Indication: ATRIAL FIBRILLATION
     Dosage: 2 MG DAILY PO, CHRONIC
     Route: 048
  2. CHOL ECALCIFEROL [Concomitant]
  3. LOPRESSOR [Concomitant]
  4. LONTUS [Concomitant]
  5. VIT C [Concomitant]
  6. OMEPRAZOLE [Concomitant]
  7. LISINOPRIL [Concomitant]
  8. ZINC SULFATE [Concomitant]
  9. REGULAR INSULIN [Concomitant]
  10. CELEXA [Concomitant]
  11. VIT D [Concomitant]
  12. VICODIN [Concomitant]
  13. IMODIUM A-D [Concomitant]
  14. PHEREIGON [Concomitant]

REACTIONS (4)
  - GASTROINTESTINAL HAEMORRHAGE [None]
  - HYPERKALAEMIA [None]
  - HYPOTENSION [None]
  - RENAL FAILURE ACUTE [None]
